FAERS Safety Report 19408649 (Version 1)
Quarter: 2021Q2

REPORT INFORMATION
  Report Type: Report from Study
  Country: GB (occurrence: GB)
  Receive Date: 20210613
  Receipt Date: 20210613
  Transmission Date: 20210717
  Serious: Yes (Hospitalization, Other)
  Sender: FDA-Public Use
  Company Number: GB-TEVA-2021-GB-1921147

PATIENT
  Sex: Female

DRUGS (1)
  1. AJOVY [Suspect]
     Active Substance: FREMANEZUMAB-VFRM
     Indication: PRODUCT USED FOR UNKNOWN INDICATION
     Route: 065

REACTIONS (7)
  - Tachycardia [Recovering/Resolving]
  - Paraesthesia [Recovering/Resolving]
  - Drug hypersensitivity [Recovering/Resolving]
  - Extrasystoles [Recovering/Resolving]
  - Rash [Recovering/Resolving]
  - Pharyngeal paraesthesia [Recovering/Resolving]
  - Oropharyngeal discomfort [Recovering/Resolving]
